FAERS Safety Report 20890692 (Version 1)
Quarter: 2022Q2

REPORT INFORMATION
  Report Type: Spontaneous
  Country: US (occurrence: US)
  Receive Date: 20220530
  Receipt Date: 20220530
  Transmission Date: 20220720
  Serious: No
  Sender: FDA-Public Use
  Company Number: US-BAUSCH-BL-2022-012675

PATIENT
  Age: 56 Year
  Sex: Female
  Weight: 80.812 kg

DRUGS (1)
  1. MESTINON [Suspect]
     Active Substance: PYRIDOSTIGMINE BROMIDE
     Indication: Myasthenia gravis
     Dosage: TABLET
     Route: 048

REACTIONS (3)
  - Peripheral swelling [Unknown]
  - Gait disturbance [Unknown]
  - Product substitution issue [Unknown]
